FAERS Safety Report 8943630 (Version 1)
Quarter: 2012Q4

REPORT INFORMATION
  Report Type: Report from Study
  Country: AU (occurrence: AU)
  Receive Date: 20121204
  Receipt Date: 20121204
  Transmission Date: 20130627
  Serious: Yes (Hospitalization)
  Sender: FDA-Public Use
  Company Number: AU-009507513-1211AUS012415

PATIENT
  Age: 55 Year
  Sex: Female
  Weight: 75 kg

DRUGS (10)
  1. TEMOZOLOMIDE [Suspect]
     Indication: GLIOBLASTOMA
     Dosage: 140 mg daily
     Route: 048
     Dates: start: 20101130
  2. TEMOZOLOMIDE [Suspect]
     Dosage: 380 mg on day 1 to 3
     Route: 048
     Dates: start: 20110309, end: 20110313
  3. TEMOZOLOMIDE [Suspect]
     Dosage: 180 mg on day 1 to 5
     Route: 048
     Dates: start: 20110524
  4. DEXAMETHASONE [Suspect]
     Indication: PRODUCT USED FOR UNKNOWN INDICATION
     Dosage: UNK
     Route: 048
  5. DEXAMETHASONE [Suspect]
     Dosage: UNK
  6. AVASTIN (BEVACIZUMAB) [Suspect]
     Indication: GLIOBLASTOMA
     Dosage: UNK, biw
     Dates: start: 20101130
  7. AVASTIN (BEVACIZUMAB) [Suspect]
     Dosage: UNK
     Dates: start: 20110309, end: 20110322
  8. CLONAZEPAM [Concomitant]
     Dosage: 1000 mg
     Dates: start: 20101209
  9. EPILIM [Concomitant]
     Dosage: 500 mg
     Dates: start: 20101209
  10. KEPPRA [Concomitant]

REACTIONS (4)
  - Mania [Recovered/Resolved]
  - None [Recovered/Resolved]
  - Haemoglobin decreased [None]
  - Haematocrit decreased [None]
